FAERS Safety Report 8386570-X (Version None)
Quarter: 2012Q2

REPORT INFORMATION
  Report Type: 
  Country: None (occurrence: None)
  Receive Date: 20120525
  Receipt Date: 20110831
  Transmission Date: 20120825
  Serious: No
  Sender: FDA-Public Use
  Company Number: US-GLAXOSMITHKLINE-A0943018A

PATIENT
  Age: 79 Year
  Sex: Female

DRUGS (13)
  1. TRIAMTERENE [Concomitant]
  2. PROCHLORPERAZINE [Concomitant]
  3. MULTI-VITAMIN [Concomitant]
  4. VERAMYST [Suspect]
     Indication: SINUSITIS
     Dosage: 1SPR TWICE PER DAY
     Route: 045
     Dates: start: 20110831
  5. XANAX [Concomitant]
  6. ANASTROZOLE [Concomitant]
  7. ASCORBIC ACID [Concomitant]
  8. LISINOPRIL [Concomitant]
  9. ADVIL [Concomitant]
  10. METOPROLOL TARTRATE [Concomitant]
  11. CALCIUM SUPPLEMENT [Concomitant]
  12. HYDROCODONE BITARTRATE [Concomitant]
  13. CHEMOTHERAPY [Concomitant]

REACTIONS (1)
  - TINNITUS [None]
